FAERS Safety Report 23672758 (Version 9)
Quarter: 2025Q1

REPORT INFORMATION
  Report Type: Spontaneous
  Country: US (occurrence: US)
  Receive Date: 20240326
  Receipt Date: 20250218
  Transmission Date: 20250409
  Serious: No
  Sender: PFIZER
  Company Number: US-PFIZER INC-202400064680

PATIENT
  Age: 4 Year
  Sex: Female
  Weight: 9.497 kg

DRUGS (2)
  1. GENOTROPIN [Suspect]
     Active Substance: SOMATROPIN
     Indication: Noonan syndrome
     Dosage: EVERY OTHER DAY SHE WOULD GET 0.4MG, THEN EVERY OTHER DAY 0.6MG
     Dates: start: 2022
  2. GENOTROPIN [Suspect]
     Active Substance: SOMATROPIN
     Dosage: EVERY OTHER DAY SHE WOULD GET 0.4MG, THEN EVERY OTHER DAY 0.6MG
     Dates: start: 2022

REACTIONS (7)
  - Poor quality product administered [Unknown]
  - Poor quality device used [Unknown]
  - Device issue [Unknown]
  - Product deposit [Unknown]
  - Injection site pain [Unknown]
  - Injection site discomfort [Unknown]
  - Off label use [Unknown]

NARRATIVE: CASE EVENT DATE: 20220101
